FAERS Safety Report 9319737 (Version 2)
Quarter: 2013Q4

REPORT INFORMATION
  Report Type: Spontaneous
  Country: US (occurrence: US)
  Receive Date: 20130530
  Receipt Date: 20131107
  Transmission Date: 20140711
  Serious: No
  Sender: FDA-Public Use
  Company Number: US-PFIZER INC-2013163001

PATIENT
  Age: 59 Year
  Sex: Female

DRUGS (10)
  1. XELJANZ [Suspect]
     Indication: RHEUMATOID ARTHRITIS
     Dosage: 1 TABLET (5 MG), TWICE A DAY
     Route: 048
  2. OMEPRAZOLE [Concomitant]
     Dosage: 20.6 MG
  3. SIMVASTATIN [Concomitant]
     Dosage: 5 MG
  4. GABAPENTIN [Concomitant]
     Dosage: 100 MG
  5. METHOTREXATE [Concomitant]
     Dosage: 20 MG
  6. PREDNISONE [Concomitant]
     Dosage: 1 MG
  7. MOBIC [Concomitant]
     Dosage: 15 MG
  8. FOLIC ACID [Concomitant]
     Dosage: UNK
  9. ALLOPURINOL [Concomitant]
     Dosage: 100 MG
  10. ASPIRIN [Concomitant]
     Dosage: 81 MG

REACTIONS (4)
  - Muscle spasms [Unknown]
  - Pain in extremity [Unknown]
  - Arthralgia [Unknown]
  - Local swelling [Unknown]
